FAERS Safety Report 5016834-9 (Version None)
Quarter: 2006Q2

REPORT INFORMATION
  Report Type: 
  Country: None (occurrence: None)
  Receive Date: 20060602
  Receipt Date: 20060524
  Transmission Date: 20061013
  Serious: Yes (Other)
  Sender: FDA-Public Use
  Company Number: US-SANOFI-SYNTHELABO-A03200603350

PATIENT
  Sex: Female

DRUGS (6)
  1. ENALAPRIL [Concomitant]
     Dosage: UNK
     Route: 048
  2. ESTRADIOL [Concomitant]
     Dosage: UNK
     Route: 065
  3. HYDROCHLOROTHIAZIDE [Concomitant]
     Dosage: UNK
     Route: 048
  4. GUANFENEX DM [Concomitant]
     Dosage: UNK
     Route: 048
  5. ATENOLOL [Concomitant]
     Dosage: UNK
     Route: 048
  6. AMBIEN [Suspect]
     Indication: INSOMNIA
     Route: 048

REACTIONS (1)
  - ROAD TRAFFIC ACCIDENT [None]
